FAERS Safety Report 25441830 (Version 1)
Quarter: 2025Q2

REPORT INFORMATION
  Report Type: Spontaneous
  Country: US (occurrence: US)
  Receive Date: 20250616
  Receipt Date: 20250616
  Transmission Date: 20250716
  Serious: Yes (Hospitalization, Other)
  Sender: PFIZER
  Company Number: US-PFIZER INC-202500121086

PATIENT
  Age: 87 Year
  Sex: Female
  Weight: 47.17 kg

DRUGS (1)
  1. XELJANZ [Suspect]
     Active Substance: TOFACITINIB CITRATE
     Indication: Arthritis
     Dosage: 5 MILLIGRAMS, TWICE A DAY
     Route: 048

REACTIONS (5)
  - Bone operation [Unknown]
  - Shoulder arthroplasty [Unknown]
  - Spinal support [Unknown]
  - Off label use [Unknown]
  - Expired product administered [Unknown]
